FAERS Safety Report 11818939 (Version 1)
Quarter: 2015Q4

REPORT INFORMATION
  Report Type: Spontaneous
  Country: US (occurrence: None)
  Receive Date: 20151209
  Receipt Date: 20151209
  Transmission Date: 20160305
  Serious: Yes (Other)
  Sender: FDA-Public Use
  Company Number: None

PATIENT
  Age: 86 Year
  Sex: Male
  Weight: 64.41 kg

DRUGS (5)
  1. ASPIRIN. [Concomitant]
     Active Substance: ASPIRIN
  2. VITAMINS B12 [Concomitant]
  3. VITAMIN C [Concomitant]
     Active Substance: ASCORBIC ACID
  4. KERASAL NAIL [Suspect]
     Active Substance: LACTIC ACID\PROPYLENE GLYCOL\UREA
     Indication: ONYCHOMYCOSIS
     Dosage: 10 ML (033 OZ), 1 DAILY APPLICATION, DRW A LINE WITH APPLICATOR, ON THUMB (ONE) NAIL
     Dates: start: 20151117, end: 20151120
  5. MULTIVITAMINS [Concomitant]
     Active Substance: VITAMINS

REACTIONS (2)
  - Chemical injury [None]
  - Blister [None]

NARRATIVE: CASE EVENT DATE: 20151117
